FAERS Safety Report 4932005-6 (Version None)
Quarter: 2006Q1

REPORT INFORMATION
  Report Type: 
  Country: None (occurrence: None)
  Receive Date: 20060303
  Receipt Date: 20060221
  Transmission Date: 20060701
  Serious: Yes (Other)
  Sender: FDA-Public Use
  Company Number: GB-GLAXOSMITHKLINE-B0413139A

PATIENT
  Age: 35 Year
  Sex: Female
  Weight: 55 kg

DRUGS (5)
  1. AMOXICILLIN [Suspect]
     Dosage: 500MG PER DAY
     Route: 048
     Dates: start: 20060215, end: 20060216
  2. GAVISCON [Concomitant]
     Route: 048
     Dates: start: 20051215
  3. ALVERINE [Concomitant]
     Indication: IRRITABLE BOWEL SYNDROME
     Dosage: 60MG PER DAY
     Route: 048
     Dates: start: 20060116
  4. CITALOPRAM [Concomitant]
     Indication: DEPRESSION
     Dosage: 40MG PER DAY
     Route: 048
     Dates: start: 20040101
  5. CO-AMILOZIDE [Concomitant]
     Indication: DEPRESSION
     Route: 048
     Dates: start: 20040213

REACTIONS (3)
  - HYPERHIDROSIS [None]
  - PALLOR [None]
  - PALPITATIONS [None]
